FAERS Safety Report 22289504 (Version 3)
Quarter: 2023Q4

REPORT INFORMATION
  Report Type: Report from Study
  Country: CA (occurrence: CA)
  Receive Date: 20230505
  Receipt Date: 20231102
  Transmission Date: 20240110
  Serious: Yes (Other)
  Sender: FDA-Public Use
  Company Number: CA-TEVA-2023-CA-2882833

PATIENT
  Age: 39 Year
  Sex: Female

DRUGS (7)
  1. COPAXONE [Suspect]
     Active Substance: GLATIRAMER ACETATE
     Indication: Relapsing-remitting multiple sclerosis
     Route: 058
     Dates: start: 20221128
  2. COPAXONE [Suspect]
     Active Substance: GLATIRAMER ACETATE
     Dosage: FORM STRENGTH AND UNIT DOSE: 20MILLIGRAM
     Route: 058
  3. SERTRALINE [Concomitant]
     Active Substance: SERTRALINE HYDROCHLORIDE
     Indication: Product used for unknown indication
  4. VITAMINS [Concomitant]
     Active Substance: VITAMINS
     Indication: Product used for unknown indication
  5. POLYETHYLENE GLYCOL 3350 [Concomitant]
     Active Substance: POLYETHYLENE GLYCOL 3350
     Indication: Product used for unknown indication
  6. VitC [Concomitant]
     Indication: Product used for unknown indication
     Route: 065
  7. VitD3 [Concomitant]
     Indication: Product used for unknown indication
     Route: 065

REACTIONS (24)
  - Cardiac flutter [Recovered/Resolved]
  - Injection site pain [Unknown]
  - Mental disorder [Unknown]
  - Nervousness [Unknown]
  - Restless legs syndrome [Unknown]
  - Myalgia [Unknown]
  - Chills [Unknown]
  - Pain [Unknown]
  - Malaise [Unknown]
  - Injection site pruritus [Unknown]
  - Injection site mass [Unknown]
  - Injection site reaction [Unknown]
  - Social avoidant behaviour [Unknown]
  - Arthralgia [Unknown]
  - Depressed mood [Unknown]
  - Injection site haemorrhage [Recovering/Resolving]
  - Flushing [Recovered/Resolved]
  - Heart rate increased [Recovered/Resolved]
  - Anxiety [Recovered/Resolved]
  - Dyspnoea [Recovered/Resolved]
  - Erythema [Recovered/Resolved]
  - Urticaria [Recovered/Resolved]
  - Immediate post-injection reaction [Recovered/Resolved]
  - Product dose omission issue [Unknown]

NARRATIVE: CASE EVENT DATE: 20230101
